FAERS Safety Report 5280742-9 (Version None)
Quarter: 2007Q1

REPORT INFORMATION
  Report Type: 
  Country: None (occurrence: None)
  Receive Date: 20070329
  Receipt Date: 20070312
  Transmission Date: 20070707
  Serious: Yes (Other)
  Sender: FDA-Public Use
  Company Number: US-SANOFI-SYNTHELABO-A03200702129

PATIENT
  Sex: Male

DRUGS (5)
  1. AVELOX [Concomitant]
     Route: 065
  2. BENZONATATE [Concomitant]
     Route: 065
  3. MEDROL [Concomitant]
     Route: 065
  4. AMBIEN [Suspect]
     Indication: SLEEP DISORDER
     Route: 048
     Dates: start: 20051019, end: 20060404
  5. AMBIEN [Suspect]
     Indication: SLEEP PARALYSIS
     Route: 048
     Dates: start: 20051019, end: 20060404

REACTIONS (3)
  - AMNESIA [None]
  - PHYSICAL ASSAULT [None]
  - SLEEP WALKING [None]
